FAERS Safety Report 7942040-1 (Version None)
Quarter: 2011Q4

REPORT INFORMATION
  Report Type: 
  Country: None (occurrence: None)
  Receive Date: 20111128
  Receipt Date: 20111118
  Transmission Date: 20120403
  Serious: Yes (Other)
  Sender: FDA-Public Use
  Company Number: US-BAYER-201035084NA

PATIENT
  Age: 28 Year
  Sex: Female
  Weight: 87.528 kg

DRUGS (6)
  1. YAZ [Suspect]
     Indication: PREMENSTRUAL SYNDROME
  2. BENTYL [Concomitant]
  3. YAZ [Suspect]
     Indication: CONTRACEPTION
     Dosage: UNK
     Route: 048
     Dates: start: 20060501, end: 20080901
  4. YAZ [Suspect]
     Indication: ACNE
  5. PHENERGAN [Concomitant]
  6. TRAMADOL HCL [Concomitant]

REACTIONS (9)
  - DYSPEPSIA [None]
  - CONSTIPATION [None]
  - DIARRHOEA [None]
  - CHOLECYSTECTOMY [None]
  - FLATULENCE [None]
  - ABDOMINAL DISTENSION [None]
  - ANXIETY [None]
  - CHOLELITHIASIS [None]
  - DEPRESSION [None]
